FAERS Safety Report 6084864-4 (Version None)
Quarter: 2009Q1

REPORT INFORMATION
  Report Type: 
  Country: None (occurrence: None)
  Receive Date: 20090220
  Receipt Date: 20090212
  Transmission Date: 20090719
  Serious: Yes (Death)
  Sender: FDA-Public Use
  Company Number: IN-RANBAXY-2009RR-21862

PATIENT
  Age: 7 Month
  Sex: Male

DRUGS (3)
  1. ACETAMINOPHEN [Suspect]
     Dosage: UNK
  2. ACETAMINOPHEN [Suspect]
     Dosage: 5 ML, QID
  3. ACETAMINOPHEN [Suspect]
     Dosage: 125 MG, QID
     Route: 048

REACTIONS (2)
  - ACUTE HEPATIC FAILURE [None]
  - OVERDOSE [None]
